FAERS Safety Report 9974189 (Version 1)
Quarter: 2014Q1

REPORT INFORMATION
  Report Type: Report from Study
  Country: JP (occurrence: JP)
  Receive Date: 20140306
  Receipt Date: 20140306
  Transmission Date: 20141002
  Serious: Yes (Hospitalization)
  Sender: FDA-Public Use
  Company Number: JP-GLAXOSMITHKLINE-B0974162A

PATIENT
  Sex: Female

DRUGS (3)
  1. VOLIBRIS [Suspect]
     Indication: PULMONARY HYPERTENSION
     Dosage: 10MG PER DAY
     Route: 048
     Dates: start: 20110921
  2. FLOLAN [Suspect]
     Indication: PULMONARY HYPERTENSION
     Route: 042
     Dates: start: 20100928
  3. REVATIO [Concomitant]
     Indication: PULMONARY HYPERTENSION
     Dosage: 20MG THREE TIMES PER DAY
     Route: 048
     Dates: start: 20080430

REACTIONS (1)
  - Adrenocorticotropic hormone deficiency [Not Recovered/Not Resolved]
